FAERS Safety Report 4644170-9 (Version None)
Quarter: 2005Q2

REPORT INFORMATION
  Report Type: 
  Country: None (occurrence: None)
  Receive Date: 20050425
  Receipt Date: 20050414
  Transmission Date: 20051028
  Serious: Yes (Other)
  Sender: FDA-Public Use
  Company Number: CH-GLAXOSMITHKLINE-B0378877A

PATIENT
  Age: 51 Year
  Sex: Female

DRUGS (18)
  1. ZOVIRAX [Suspect]
     Indication: ORGAN TRANSPLANT
     Dosage: 800MG PER DAY
     Route: 048
     Dates: start: 20050214
  2. MORPHINE [Suspect]
     Indication: DRUG USE FOR UNKNOWN INDICATION
     Dosage: 22MG PER DAY
     Route: 042
     Dates: start: 20050218, end: 20050301
  3. CEFEPIME HYDROCHLORIDE [Suspect]
     Indication: BACTERIAL INFECTION
     Dosage: 2MG THREE TIMES PER DAY
     Dates: start: 20050218
  4. CYCLOSPORINE [Suspect]
     Indication: ORGAN TRANSPLANT
     Dosage: 240MG PER DAY
     Route: 048
     Dates: start: 20050216
  5. LORAZEPAM [Suspect]
     Indication: DRUG USE FOR UNKNOWN INDICATION
     Dosage: 1.5MG PER DAY
     Route: 048
     Dates: start: 20050207
  6. CITALOPRAM HYDROBROMIDE [Suspect]
     Indication: DEPRESSION
     Dosage: 20MG PER DAY
     Route: 048
  7. VORICONAZOLE [Suspect]
     Indication: DRUG USE FOR UNKNOWN INDICATION
     Dosage: 200MG FOUR TIMES PER DAY
     Route: 042
  8. FLUCONAZOLE [Suspect]
     Indication: DRUG USE FOR UNKNOWN INDICATION
     Dosage: 200MG PER DAY
     Route: 048
     Dates: start: 20050218
  9. OMEPRAZOLE [Suspect]
     Indication: DRUG USE FOR UNKNOWN INDICATION
     Dosage: 20MG PER DAY
     Route: 048
     Dates: start: 20050218
  10. HEPARIN SODIUM [Concomitant]
     Indication: DRUG USE FOR UNKNOWN INDICATION
     Dosage: 5000IU PER DAY
     Route: 042
     Dates: start: 20050207
  11. DEFIBROTIDE [Concomitant]
     Indication: DRUG USE FOR UNKNOWN INDICATION
     Dosage: 1600MG PER DAY
     Route: 048
     Dates: start: 20050207
  12. PARACETAMOL [Concomitant]
     Indication: DRUG USE FOR UNKNOWN INDICATION
     Dosage: 1G PER DAY
     Route: 048
     Dates: start: 20050207
  13. METRONIDAZOLE [Concomitant]
     Indication: DRUG USE FOR UNKNOWN INDICATION
     Dosage: 500MG THREE TIMES PER DAY
     Route: 048
     Dates: start: 20050218
  14. TEICOPLANIN [Concomitant]
     Indication: DRUG USE FOR UNKNOWN INDICATION
     Dosage: 400MG TWICE PER DAY
     Route: 042
  15. CALCIUM FOLINATE [Concomitant]
     Indication: DRUG USE FOR UNKNOWN INDICATION
     Dosage: 24MG PER DAY
     Route: 042
     Dates: start: 20050222
  16. METOCLOPRAMIDE HYDROCHLORIDE [Concomitant]
     Dosage: 10MG PER DAY
     Route: 048
     Dates: start: 20050222
  17. SUCRALFATE [Concomitant]
     Indication: DRUG USE FOR UNKNOWN INDICATION
     Dosage: 1G THREE TIMES PER DAY
     Route: 048
     Dates: start: 20050222
  18. VORICONAZOLE [Concomitant]
     Dosage: 200MG FOUR TIMES PER DAY
     Route: 048
     Dates: start: 20050225, end: 20050226

REACTIONS (7)
  - CHOLESTASIS [None]
  - CONFUSIONAL STATE [None]
  - HALLUCINATION [None]
  - PSYCHOMOTOR RETARDATION [None]
  - SOMNOLENCE [None]
  - STOMATITIS [None]
  - TRANSAMINASES ABNORMAL [None]
